FAERS Safety Report 24625015 (Version 2)
Quarter: 2024Q4

REPORT INFORMATION
  Report Type: Spontaneous
  Country: FR (occurrence: FR)
  Receive Date: 20241115
  Receipt Date: 20241120
  Transmission Date: 20250114
  Serious: Yes (Other)
  Sender: ALEXION PHARMACEUTICALS
  Company Number: FR-SA-2024SA311095

PATIENT
  Age: 1 Year

DRUGS (4)
  1. NIRSEVIMAB [Suspect]
     Active Substance: NIRSEVIMAB
     Indication: Respiratory syncytial virus immunisation
     Dosage: 100 MICROGRAM, (100 UG, 1X)
     Route: 065
  2. NIRSEVIMAB [Suspect]
     Active Substance: NIRSEVIMAB
     Dosage: 100 MICROGRAM, (100 UG, 1X)
  3. NIRSEVIMAB [Suspect]
     Active Substance: NIRSEVIMAB
     Dosage: 100 MICROGRAM, (100 UG, 1X)
     Route: 065
  4. NIRSEVIMAB [Suspect]
     Active Substance: NIRSEVIMAB
     Dosage: 100 MICROGRAM, (100 UG, 1X)

REACTIONS (3)
  - Respiratory syncytial virus bronchiolitis [Recovering/Resolving]
  - Incorrect dose administered [Unknown]
  - Wheezing [Unknown]
